FAERS Safety Report 7950662-7 (Version None)
Quarter: 2011Q4

REPORT INFORMATION
  Report Type: 
  Country: None (occurrence: None)
  Receive Date: 20111201
  Receipt Date: 20111125
  Transmission Date: 20120403
  Serious: Yes (Other)
  Sender: FDA-Public Use
  Company Number: BR-ACCORD-011460

PATIENT
  Sex: Female

DRUGS (1)
  1. PACLITAXEL [Suspect]
     Indication: OVARIAN CANCER
     Route: 042
     Dates: end: 20111010

REACTIONS (4)
  - DIZZINESS [None]
  - NO THERAPEUTIC RESPONSE [None]
  - NAUSEA [None]
  - ABDOMINAL PAIN [None]
